FAERS Safety Report 17691572 (Version 8)
Quarter: 2021Q2

REPORT INFORMATION
  Report Type: Other
  Country: US (occurrence: US)
  Receive Date: 20200422
  Receipt Date: 20210608
  Transmission Date: 20210716
  Serious: Yes (Hospitalization, Other)
  Sender: FDA-Public Use
  Company Number: US-ROCHE-2586158

PATIENT
  Age: 58 Year
  Sex: Female
  Weight: 59.02 kg

DRUGS (20)
  1. EFFEXOR [Concomitant]
     Active Substance: VENLAFAXINE HYDROCHLORIDE
     Indication: DEPRESSION
     Dosage: NEXT DOSE RECEIVED ON /MAR/2020
     Route: 048
     Dates: start: 2019
  2. NEURONTIN [Concomitant]
     Active Substance: GABAPENTIN
     Indication: NEURALGIA
     Route: 048
     Dates: start: 2009
  3. GABAPENTIN. [Concomitant]
     Active Substance: GABAPENTIN
     Indication: NEURALGIA
  4. ZINC. [Concomitant]
     Active Substance: ZINC
     Route: 048
  5. PROVIGIL [Concomitant]
     Active Substance: MODAFINIL
     Indication: FATIGUE
     Route: 048
     Dates: start: 2009
  6. VITAMIN C [Concomitant]
     Active Substance: ASCORBIC ACID
     Route: 048
  7. LEXAPRO [Concomitant]
     Active Substance: ESCITALOPRAM OXALATE
     Indication: DEPRESSION
  8. VITAMIN B COMPLEX [Concomitant]
     Active Substance: CYANOCOBALAMIN\DEXPANTHENOL\NIACINAMIDE\PYRIDOXINE HYDROCHLORIDE\RIBOFLAVIN 5^-PHOSPHATE SODIUM\THIAMINE HYDROCHLORIDE\VITAMIN B COMPLEX
  9. METHYLPREDNISOLONE. [Concomitant]
     Active Substance: METHYLPREDNISOLONE
  10. OCREVUS [Suspect]
     Active Substance: OCRELIZUMAB
     Indication: RELAPSING-REMITTING MULTIPLE SCLEROSIS
     Dosage: PRESCRIBED WITH INFUSE 300 MG ON DAY 1, REPEAT DAY 15, 30MG/ML INJECTION?DATE OF TREATMENT: 01/MAY/
     Route: 042
     Dates: start: 20180415
  11. OCREVUS [Suspect]
     Active Substance: OCRELIZUMAB
     Dosage: 30MG/ML INJECTION
     Route: 042
  12. REMERON [Concomitant]
     Active Substance: MIRTAZAPINE
     Indication: DEPRESSION
     Route: 048
     Dates: start: 2020
  13. LEXAPRO [Concomitant]
     Active Substance: ESCITALOPRAM OXALATE
     Indication: ANXIETY
  14. OXYGEN. [Concomitant]
     Active Substance: OXYGEN
  15. OCREVUS [Suspect]
     Active Substance: OCRELIZUMAB
     Route: 042
     Dates: start: 2017
  16. VITAMIN B12 [Concomitant]
     Active Substance: CYANOCOBALAMIN
     Route: 048
  17. BIOTIN [Concomitant]
     Active Substance: BIOTIN
     Route: 048
  18. B COMPLEX WITH FOLIC ACID [Concomitant]
     Route: 048
  19. AMANTADINE. [Concomitant]
     Active Substance: AMANTADINE HYDROCHLORIDE
     Indication: DEPRESSION
  20. AMANTADINE. [Concomitant]
     Active Substance: AMANTADINE HYDROCHLORIDE
     Indication: FATIGUE

REACTIONS (23)
  - Cellulitis [Recovered/Resolved]
  - Blindness [Unknown]
  - Conjunctivitis [Recovered/Resolved]
  - Drug hypersensitivity [Not Recovered/Not Resolved]
  - Headache [Not Recovered/Not Resolved]
  - Hallucination [Unknown]
  - Tendon disorder [Unknown]
  - Thrombosis [Not Recovered/Not Resolved]
  - Dysphagia [Not Recovered/Not Resolved]
  - Nausea [Unknown]
  - Vomiting [Unknown]
  - Migraine [Recovered/Resolved]
  - COVID-19 [Recovered/Resolved]
  - Fatigue [Recovered/Resolved]
  - Vitamin D decreased [Not Recovered/Not Resolved]
  - Oesophageal rupture [Unknown]
  - Abnormal weight gain [Unknown]
  - Feeling hot [Unknown]
  - Multiple sclerosis [Recovered/Resolved]
  - Pruritus [Not Recovered/Not Resolved]
  - Disorientation [Unknown]
  - Bronchitis [Recovering/Resolving]
  - Cough [Unknown]

NARRATIVE: CASE EVENT DATE: 2018
